FAERS Safety Report 15344725 (Version 3)
Quarter: 2018Q3

REPORT INFORMATION
  Report Type: Spontaneous
  Country: DE (occurrence: DE)
  Receive Date: 20180903
  Receipt Date: 20180913
  Transmission Date: 20181010
  Serious: Yes (Hospitalization, Other)
  Sender: FDA-Public Use
  Company Number: PHHY2018DE084279

PATIENT
  Age: 48 Year
  Sex: Female

DRUGS (1)
  1. VALSARTAN AND HYDROCHLOROTHIAZIDE [Suspect]
     Active Substance: HYDROCHLOROTHIAZIDE\VALSARTAN
     Indication: PRODUCT USED FOR UNKNOWN INDICATION
     Dosage: 1 DF, UNK (1 DSF = 80 MILLIGRAM VALSARTAN/ 12.5 MILLIGRAM HYDROCHLOROTHIAZIDE)
     Route: 048

REACTIONS (1)
  - Borderline serous tumour of ovary [Unknown]

NARRATIVE: CASE EVENT DATE: 201407
